FAERS Safety Report 17224141 (Version 1)
Quarter: 2020Q1

REPORT INFORMATION
  Report Type: Report from Study
  Country: US (occurrence: US)
  Receive Date: 20200102
  Receipt Date: 20200102
  Transmission Date: 20200409
  Serious: Yes (Other)
  Sender: FDA-Public Use
  Company Number: US-ZYDUS-045149

PATIENT
  Sex: Female

DRUGS (1)
  1. METHOTREXATE. [Suspect]
     Active Substance: METHOTREXATE
     Indication: LEUKAEMIA
     Route: 065

REACTIONS (3)
  - Maternal exposure during pregnancy [Unknown]
  - Chronic villitis of unknown etiology [Unknown]
  - Small size placenta [Unknown]
